FAERS Safety Report 6796331-0 (Version None)
Quarter: 2010Q2

REPORT INFORMATION
  Report Type: 
  Country: None (occurrence: None)
  Receive Date: 20100622
  Receipt Date: 20100618
  Transmission Date: 20101027
  Serious: Yes (Hospitalization, Other)
  Sender: FDA-Public Use
  Company Number: CL-121-2010

PATIENT
  Age: 67 Year
  Sex: Male

DRUGS (2)
  1. ONDANSETRON HCL [Suspect]
     Indication: NAUSEA
     Dosage: 4MG, QDS, INTRAVENOUS
     Route: 042
  2. ONDANSETRON HCL [Suspect]
     Indication: VOMITING
     Dosage: 4MG, QDS, INTRAVENOUS
     Route: 042

REACTIONS (3)
  - DRUG WITHDRAWAL SYNDROME [None]
  - FLUSHING [None]
  - TREMOR [None]
